FAERS Safety Report 21676159 (Version 1)
Quarter: 2022Q4

REPORT INFORMATION
  Report Type: Spontaneous
  Country: BA (occurrence: BA)
  Receive Date: 20221202
  Receipt Date: 20221202
  Transmission Date: 20230113
  Serious: Yes (Other)
  Sender: FDA-Public Use
  Company Number: BA-BAYER-2022P023600

PATIENT
  Age: 45 Year
  Sex: Male

DRUGS (2)
  1. NEXAVAR [Suspect]
     Active Substance: SORAFENIB
     Indication: Hepatocellular carcinoma
     Dosage: 400 MG BID
     Route: 048
     Dates: start: 201203
  2. NEXAVAR [Suspect]
     Active Substance: SORAFENIB
     Indication: Renal cell carcinoma
     Dosage: 400 MG, QD
     Route: 048
     Dates: end: 201212

REACTIONS (5)
  - Metastases to lung [None]
  - Metastases to liver [None]
  - Metastases to rectum [None]
  - Rectal haemorrhage [None]
  - Depression [None]

NARRATIVE: CASE EVENT DATE: 20121001
